FAERS Safety Report 6207807-9 (Version None)
Quarter: 2009Q2

REPORT INFORMATION
  Report Type: 
  Country: None (occurrence: None)
  Receive Date: 20090522
  Receipt Date: 20090511
  Transmission Date: 20091009
  Serious: Yes (Death)
  Sender: FDA-Public Use
  Company Number: 2009-01866

PATIENT
  Age: 62 Year
  Sex: Male
  Weight: 75 kg

DRUGS (3)
  1. VELCADE [Suspect]
     Indication: MULTIPLE MYELOMA
     Dosage: 1.3 MG/M2, INTRAVENOUS
     Route: 042
     Dates: start: 20081201, end: 20090201
  2. ROCEPHIN [Concomitant]
  3. AUGMENTIN (CLAVULANATE POTASSIUM, AMOXICILLIN TRIHYDRATE) CAPSULE [Concomitant]

REACTIONS (5)
  - ANAESTHESIA [None]
  - DENGUE FEVER [None]
  - MALIGNANT NEOPLASM PROGRESSION [None]
  - MULTIPLE MYELOMA [None]
  - PARAESTHESIA [None]
